FAERS Safety Report 23100919 (Version 2)
Quarter: 2024Q1

REPORT INFORMATION
  Report Type: Spontaneous
  Country: US (occurrence: US)
  Receive Date: 20231024
  Receipt Date: 20240123
  Transmission Date: 20240410
  Serious: Yes (Hospitalization)
  Sender: FDA-Public Use
  Company Number: US-NOVOPROD-1129125

PATIENT
  Sex: Male

DRUGS (1)
  1. OZEMPIC [Suspect]
     Active Substance: SEMAGLUTIDE
     Indication: Diabetes mellitus inadequate control
     Dosage: UNK
     Route: 058
     Dates: start: 2023, end: 20231011

REACTIONS (4)
  - Impaired insulin secretion [Unknown]
  - Pancreatic disorder [Unknown]
  - Drug ineffective [Unknown]
  - Blood glucose increased [Unknown]
